FAERS Safety Report 14654473 (Version 2)
Quarter: 2018Q2

REPORT INFORMATION
  Report Type: Spontaneous
  Country: GR (occurrence: GR)
  Receive Date: 20180319
  Receipt Date: 20180417
  Transmission Date: 20180711
  Serious: Yes (Other)
  Sender: FDA-Public Use
  Company Number: GR-BAXTER-2018BAX008857

PATIENT
  Sex: Female

DRUGS (6)
  1. ENDOXAN 1000 MG - POWDER FOR SOLUTION FOR INJECTION [Suspect]
     Active Substance: CYCLOPHOSPHAMIDE
     Indication: PRODUCT USED FOR UNKNOWN INDICATION
     Route: 065
     Dates: start: 2013
  2. GARDASIL [Suspect]
     Active Substance: HUMAN PAPILLOMAVIRUS QUADRIVALENT (TYPES 6, 11, 16, AND 18) VACCINE, RECOMBINANT
     Dosage: (3RD DOSE) QUADRIVALENT HUMAN PAPILLOMAVIRUS (TYPES 6,11,16,18) RECOMB. VACCINE; DOSAGE FORM: INTRAM
     Route: 065
     Dates: start: 20120306, end: 20120306
  3. GARDASIL [Suspect]
     Active Substance: HUMAN PAPILLOMAVIRUS QUADRIVALENT (TYPES 6, 11, 16, AND 18) VACCINE, RECOMBINANT
     Indication: PROPHYLAXIS
     Dosage: (1ST DOSE) QUADRIVALENT HUMAN PAPILLOMAVIRUS (TYPES 6,11,16,18) RECOMB. VACCINE; DOSAGE FORM: INTRAM
     Route: 065
     Dates: start: 20110621, end: 20110621
  4. GARDASIL [Suspect]
     Active Substance: HUMAN PAPILLOMAVIRUS QUADRIVALENT (TYPES 6, 11, 16, AND 18) VACCINE, RECOMBINANT
     Dosage: (2ND DOSE) QUADRIVALENT HUMAN PAPILLOMAVIRUS (TYPES 6,11,16,18) RECOMB. VACCINE; DOSAGE FORM: INTRAM
     Route: 065
     Dates: start: 20110923, end: 20110923
  5. CORTISONE [Suspect]
     Active Substance: CORTISONE\HYDROCORTISONE
     Indication: PRODUCT USED FOR UNKNOWN INDICATION
     Route: 065
     Dates: start: 2012
  6. TRILEPTAL [Concomitant]
     Active Substance: OXCARBAZEPINE
     Indication: PRODUCT USED FOR UNKNOWN INDICATION
     Dosage: UNK
     Route: 065

REACTIONS (2)
  - Condition aggravated [Recovered/Resolved with Sequelae]
  - Acute disseminated encephalomyelitis [Recovered/Resolved with Sequelae]

NARRATIVE: CASE EVENT DATE: 2013
